FAERS Safety Report 4873360-5 (Version None)
Quarter: 2006Q1

REPORT INFORMATION
  Report Type: 
  Country: None (occurrence: None)
  Receive Date: 20060105
  Receipt Date: 20051226
  Transmission Date: 20060701
  Serious: Yes (Hospitalization)
  Sender: FDA-Public Use
  Company Number: US-ROCHE-429968

PATIENT
  Age: 54 Year
  Sex: Male

DRUGS (5)
  1. PEGASYS [Suspect]
     Route: 058
     Dates: start: 20050422, end: 20051217
  2. COPEGUS [Suspect]
     Route: 048
     Dates: start: 20050422, end: 20051217
  3. MORPHINE [Concomitant]
     Indication: PAIN
  4. SOMA [Concomitant]
  5. LEXAPRO [Concomitant]

REACTIONS (1)
  - INTESTINAL OBSTRUCTION [None]
